FAERS Safety Report 18305638 (Version 4)
Quarter: 2020Q4

REPORT INFORMATION
  Report Type: Report from Study
  Country: None (occurrence: US)
  Receive Date: 20200924
  Receipt Date: 20201119
  Transmission Date: 20210113
  Serious: Yes (Hospitalization, Other)
  Sender: FDA-Public Use
  Company Number: US-ABBVIE-20K-163-3452250-00

PATIENT
  Sex: Female

DRUGS (3)
  1. HUMIRA [Suspect]
     Active Substance: ADALIMUMAB
     Route: 058
  2. HUMIRA [Suspect]
     Active Substance: ADALIMUMAB
     Route: 058
  3. HUMIRA [Suspect]
     Active Substance: ADALIMUMAB
     Indication: HIDRADENITIS
     Route: 058

REACTIONS (24)
  - Loss of consciousness [Unknown]
  - Back disorder [Unknown]
  - Blood glucose fluctuation [Unknown]
  - Diabetes mellitus [Not Recovered/Not Resolved]
  - Pain in extremity [Unknown]
  - Mood swings [Unknown]
  - Somnolence [Unknown]
  - Cyst [Not Recovered/Not Resolved]
  - Bronchitis [Recovered/Resolved]
  - Abdominal wall cyst [Unknown]
  - Back pain [Not Recovered/Not Resolved]
  - Mobility decreased [Unknown]
  - Fluid retention [Not Recovered/Not Resolved]
  - Wound complication [Unknown]
  - Fall [Recovered/Resolved]
  - Blood potassium decreased [Recovered/Resolved]
  - Stress [Unknown]
  - Rash [Not Recovered/Not Resolved]
  - Joint injury [Unknown]
  - Premenstrual syndrome [Unknown]
  - Hormone level abnormal [Unknown]
  - Hidradenitis [Not Recovered/Not Resolved]
  - Limb injury [Unknown]
  - Muscle spasms [Unknown]
